FAERS Safety Report 14510459 (Version 3)
Quarter: 2018Q1

REPORT INFORMATION
  Report Type: Report from Study
  Country: US (occurrence: US)
  Receive Date: 20180209
  Receipt Date: 20180214
  Transmission Date: 20180509
  Serious: No
  Sender: FDA-Public Use
  Company Number: PHEH2018US005296

PATIENT
  Sex: Male

DRUGS (2)
  1. ENTRESTO [Suspect]
     Active Substance: SACUBITRIL\VALSARTAN
     Indication: PRODUCT USED FOR UNKNOWN INDICATION
     Dosage: 1 DF, BID (ONE PILL IN THE MORNING AND ONE AT NIGHT)
     Route: 048
  2. ENTRESTO [Suspect]
     Active Substance: SACUBITRIL\VALSARTAN
     Dosage: 0.5 DF, BID (HALF A PILL IN THE MORNING AND THE OTHER HALF AT NIGHT)
     Route: 065

REACTIONS (4)
  - Hypotension [Unknown]
  - Wrong technique in product usage process [Unknown]
  - Renal disorder [Unknown]
  - Liver disorder [Unknown]
